FAERS Safety Report 8429706-4 (Version None)
Quarter: 2012Q2

REPORT INFORMATION
  Report Type: 
  Country: None (occurrence: None)
  Receive Date: 20120612
  Receipt Date: 20120531
  Transmission Date: 20120825
  Serious: Yes (Hospitalization)
  Sender: FDA-Public Use
  Company Number: JP-ELI_LILLY_AND_COMPANY-JP201203005859

PATIENT
  Sex: Female
  Weight: 45 kg

DRUGS (12)
  1. ACTONEL [Concomitant]
     Dosage: UNK
     Dates: start: 20071229
  2. GASTROM [Concomitant]
     Dosage: UNK
     Dates: start: 20071229
  3. LAC-B [Concomitant]
     Dosage: UNK
     Dates: start: 20071229
  4. ALIMTA [Suspect]
     Indication: LUNG ADENOCARCINOMA STAGE II
     Dosage: 600 MG, OTHER
     Route: 042
     Dates: start: 20100706, end: 20100816
  5. MOBIC [Concomitant]
     Dosage: UNK
     Dates: start: 20071229
  6. FAMOTIDINE [Concomitant]
     Dosage: UNK
     Dates: start: 20071229
  7. DEPAS [Concomitant]
     Dosage: UNK
     Dates: start: 20071229
  8. PROGRAF [Concomitant]
     Dosage: UNK
     Dates: start: 20071229
  9. ETODOLAC [Concomitant]
     Dosage: UNK
     Dates: start: 20071229
  10. PREDNISOLONE [Concomitant]
     Dosage: UNK
     Dates: start: 20071229
  11. VITAMIN B12 [Concomitant]
     Dosage: UNK
     Dates: start: 20100611
  12. PANVITAN [Concomitant]
     Dosage: UNK
     Dates: start: 20100625

REACTIONS (1)
  - LUNG DISORDER [None]
